FAERS Safety Report 7979179-0 (Version None)
Quarter: 2011Q4

REPORT INFORMATION
  Report Type: 
  Country: None (occurrence: None)
  Receive Date: 20111214
  Receipt Date: 20111208
  Transmission Date: 20120403
  Serious: Yes (Death, Life-Threatening, Hospitalization, Other)
  Sender: FDA-Public Use
  Company Number: JP-ROXANE LABORATORIES, INC.-2011-RO-01777RO

PATIENT
  Age: 76 Year
  Sex: Female

DRUGS (2)
  1. AZATHIOPRINE [Suspect]
     Indication: APLASIA PURE RED CELL
  2. AZATHIOPRINE [Suspect]
     Indication: MYELODYSPLASTIC SYNDROME
     Dosage: 50 MG
     Dates: start: 20020401

REACTIONS (6)
  - PROGRESSIVE MULTIFOCAL LEUKOENCEPHALOPATHY [None]
  - LOCKED-IN SYNDROME [None]
  - PNEUMONIA [None]
  - APLASIA PURE RED CELL [None]
  - FEMORAL NECK FRACTURE [None]
  - JC VIRUS INFECTION [None]
